FAERS Safety Report 15343902 (Version 2)
Quarter: 2019Q1

REPORT INFORMATION
  Report Type: Spontaneous
  Country: DE (occurrence: DE)
  Receive Date: 20180903
  Receipt Date: 20190212
  Transmission Date: 20190417
  Serious: Yes (Hospitalization)
  Sender: FDA-Public Use
  Company Number: PHHY2018DE084331

PATIENT
  Age: 37 Year
  Sex: Female
  Weight: 98 kg

DRUGS (5)
  1. PACLITAXEL. [Suspect]
     Active Substance: PACLITAXEL
     Indication: BREAST CANCER
     Dosage: 160 MG (DAILY DOSE: 160 MG MILLGRAM(S) EVERY WEEKS), QW
     Route: 042
     Dates: start: 20150204
  2. TRASTUZUMAB. [Suspect]
     Active Substance: TRASTUZUMAB
     Indication: BREAST CANCER
     Dosage: 600 MG (DAILY DOSE: 600 MG MILLGRAM(S) EVERY 3 WEEKS), Q3W
     Route: 058
     Dates: start: 20140114
  3. TRASTUZUMAB. [Suspect]
     Active Substance: TRASTUZUMAB
     Dosage: 600 MG (DAILY DOSE: 600 MG MILLGRAM(S) EVERY 3 WEEKS), Q3W
     Route: 058
     Dates: start: 20141223
  4. HERCEPTIN [Suspect]
     Active Substance: TRASTUZUMAB
     Indication: BREAST CANCER
     Dosage: 1 OT, Q3W
     Route: 058
     Dates: start: 20141223
  5. TRASTUZUMAB. [Suspect]
     Active Substance: TRASTUZUMAB
     Dosage: 600 MG (DAILY DOSE: 600 MG MILLGRAM(S) EVERY 3 WEEKS), Q3W
     Route: 058
     Dates: start: 20150204

REACTIONS (2)
  - Pyrexia [Unknown]
  - Influenza like illness [Recovered/Resolved]

NARRATIVE: CASE EVENT DATE: 20150209
